FAERS Safety Report 9506083 (Version 1)
Quarter: 2013Q1

REPORT INFORMATION
  Report Type: Spontaneous
  Country: US (occurrence: None)
  Receive Date: 20130207
  Receipt Date: 20130207
  Transmission Date: 20140127
  Serious: Yes (Other)
  Sender: FDA-Public Use
  Company Number: 1215231

PATIENT
  Age: 19 Year
  Sex: Female

DRUGS (9)
  1. BUPIVACAINE [Suspect]
     Dosage: INTRADISCAL
     Dates: start: 20120302, end: 20120302
  2. EPINEPHRINE INJ, USP (EPINEPHRINE) [Concomitant]
  3. KETAMINE HCL INJ, USP 10ML MULTI DOSE FLIPTOP VIAL, 50MG/ML, CS/100 (KETAMINE HYDROCHLORIDE) [Concomitant]
  4. MIDAZOLAM HYDROCHLORIDE INJECTION, (MIDAZOLAM) [Concomitant]
  5. FENTANYL CITRATE INJECTION USP (FENTANYL CITRATE) [Concomitant]
  6. REGLAN [Concomitant]
  7. BYETTA [Concomitant]
  8. LACTATED RINGERS (LACTATED RINGERS) [Concomitant]
  9. PROCAINE [Concomitant]

REACTIONS (1)
  - Drug ineffective [None]
